FAERS Safety Report 17442907 (Version 1)
Quarter: 2020Q1

REPORT INFORMATION
  Report Type: Spontaneous
  Country: DK (occurrence: DK)
  Receive Date: 20200221
  Receipt Date: 20200221
  Transmission Date: 20200409
  Serious: Yes (Life-Threatening, Hospitalization, Other)
  Sender: FDA-Public Use
  Company Number: DK-BRISTOL-MYERS SQUIBB COMPANY-BMS-2020-014077

PATIENT
  Age: 55 Year
  Sex: Female

DRUGS (5)
  1. ACICLODAN [Concomitant]
     Indication: HERPES ZOSTER
     Dosage: 4000 MILLIGRAM
     Route: 048
     Dates: start: 20181107
  2. METOPROLOLSUCCINAT HEXAL [Concomitant]
     Active Substance: METOPROLOL SUCCINATE
     Indication: ARRHYTHMIA
     Dosage: 50 MILLIGRAM DAILY
     Route: 048
     Dates: start: 20151014
  3. AIROMIR [SALBUTAMOL SULFATE] [Concomitant]
     Active Substance: ALBUTEROL SULFATE
     Indication: ASTHMA
     Dosage: 2 DOSAGE FORM AS NECESSARY
     Route: 055
     Dates: start: 20160429
  4. ELIQUIS [Suspect]
     Active Substance: APIXABAN
     Indication: THROMBOSIS PROPHYLAXIS
     Dosage: 10 MILLIGRAM DAILY
     Route: 048
     Dates: start: 20151014, end: 20200210
  5. SPIRON [SPIRONOLACTONE] [Concomitant]
     Indication: CARDIAC FAILURE
     Dosage: 25 MILLIGRAM DAILY
     Route: 048
     Dates: start: 20151014

REACTIONS (7)
  - Dysarthria [Recovering/Resolving]
  - Cerebral haemorrhage [Recovering/Resolving]
  - Aphasia [Recovering/Resolving]
  - Facial paresis [Recovering/Resolving]
  - Gait disturbance [Recovering/Resolving]
  - Hemiparesis [Recovering/Resolving]
  - Intracranial aneurysm [Recovering/Resolving]

NARRATIVE: CASE EVENT DATE: 20190211
